FAERS Safety Report 4348413-0 (Version None)
Quarter: 2004Q2

REPORT INFORMATION
  Report Type: 
  Country: None (occurrence: None)
  Receive Date: 20040422
  Receipt Date: 20040412
  Transmission Date: 20050107
  Serious: Yes (Death)
  Sender: FDA-Public Use
  Company Number: K200400537

PATIENT
  Age: 82 Year
  Sex: Male

DRUGS (5)
  1. ALTACE [Suspect]
     Indication: CARDIAC FAILURE
     Dosage: 2.5 MG, QD, ORAL
     Route: 048
     Dates: start: 20031014, end: 20031024
  2. LASIX [Suspect]
     Indication: CARDIAC FAILURE
     Dosage: 40 MG, QD, ORAL
     Route: 048
     Dates: start: 19980107
  3. DISPRIL(ACETYLSALICYLIC ACID) [Concomitant]
  4. GLURENORM (GLIQUIDONE) [Concomitant]
  5. CORVATION (MOLSIDOMINE) [Concomitant]

REACTIONS (2)
  - HYPOTENSION [None]
  - RENAL FAILURE [None]
